FAERS Safety Report 8540229 (Version 2)
Quarter: 2013Q1

REPORT INFORMATION
  Report Type: Spontaneous
  Country: BR (occurrence: BR)
  Receive Date: 20120502
  Receipt Date: 20130313
  Transmission Date: 20140127
  Serious: Yes (Hospitalization)
  Sender: FDA-Public Use
  Company Number: BR-ASTELLAS-2012US004262

PATIENT
  Age: 64 Year
  Sex: Male
  Weight: 83 kg

DRUGS (7)
  1. TARCEVA [Suspect]
     Indication: NEOPLASM MALIGNANT
     Dosage: 150 MG, QOD
     Route: 048
     Dates: start: 20120330, end: 201204
  2. TARCEVA [Suspect]
     Dosage: 100 MG, QOD
     Route: 048
     Dates: start: 201205
  3. TARCEVA [Suspect]
     Dosage: 150 MG, QOD
     Route: 048
     Dates: start: 201206
  4. TARCEVA [Suspect]
     Dosage: 150 MG,  2 IN ONE WEEK
     Route: 048
     Dates: start: 201207
  5. ACETAMINOPHEN [Concomitant]
     Indication: PRODUCT USED FOR UNKNOWN INDICATION
     Dosage: 500 MG, Q6 HOURS
     Route: 065
  6. ENALAPRIL [Concomitant]
     Indication: PRODUCT USED FOR UNKNOWN INDICATION
     Dosage: 20 MG, UNKNOWN/D
     Route: 065
  7. CODEINE [Concomitant]
     Indication: PRODUCT USED FOR UNKNOWN INDICATION
     Dosage: 30 MG, UNKNOWN/D
     Route: 065

REACTIONS (5)
  - Electrolyte imbalance [Not Recovered/Not Resolved]
  - Dehydration [Not Recovered/Not Resolved]
  - Diarrhoea [Recovered/Resolved]
  - Renal failure acute [Recovered/Resolved]
  - Blood creatinine increased [Recovered/Resolved]
